FAERS Safety Report 10215098 (Version 3)
Quarter: 2014Q2

REPORT INFORMATION
  Report Type: Report from Study
  Country: CA (occurrence: CA)
  Receive Date: 20140603
  Receipt Date: 20140630
  Transmission Date: 20141212
  Serious: Yes (Hospitalization)
  Sender: FDA-Public Use
  Company Number: CA-ABBVIE-14K-028-1231540-00

PATIENT
  Age: 46 Year
  Sex: Female

DRUGS (2)
  1. HUMIRA [Suspect]
     Indication: CROHN^S DISEASE
     Route: 058
     Dates: start: 20130105, end: 20140417
  2. HUMIRA [Suspect]
     Dosage: LATEST DOSE: 07 JUN 2014
     Dates: start: 20140507

REACTIONS (6)
  - Gastrointestinal oedema [Recovering/Resolving]
  - Crohn^s disease [Recovered/Resolved]
  - Vomiting [Recovering/Resolving]
  - Diarrhoea [Recovering/Resolving]
  - Vomiting projectile [Recovered/Resolved]
  - Food poisoning [Recovered/Resolved]
